FAERS Safety Report 16640406 (Version 2)
Quarter: 2019Q3

REPORT INFORMATION
  Report Type: Report from Study
  Country: None (occurrence: AU)
  Receive Date: 20190728
  Receipt Date: 20190912
  Transmission Date: 20191004
  Serious: Yes (Hospitalization)
  Sender: FDA-Public Use
  Company Number: AU-ABBVIE-19K-008-2865985-00

PATIENT
  Sex: Female

DRUGS (4)
  1. METERMINE [Concomitant]
     Indication: WEIGHT CONTROL
  2. HUMIRA [Suspect]
     Active Substance: ADALIMUMAB
     Indication: ANKYLOSING SPONDYLITIS
     Route: 058
     Dates: end: 201906
  3. HUMIRA [Suspect]
     Active Substance: ADALIMUMAB
     Route: 058
     Dates: start: 20190909
  4. METERMINE [Concomitant]
     Indication: FATIGUE

REACTIONS (7)
  - Pain [Unknown]
  - Infection [Recovering/Resolving]
  - Somnolence [Unknown]
  - Hidradenitis [Recovering/Resolving]
  - Feeling abnormal [Unknown]
  - Stress [Recovering/Resolving]
  - Tooth abscess [Recovering/Resolving]

NARRATIVE: CASE EVENT DATE: 2019
